FAERS Safety Report 6207833-X (Version None)
Quarter: 2009Q2

REPORT INFORMATION
  Report Type: 
  Country: None (occurrence: None)
  Receive Date: 20090522
  Receipt Date: 20090513
  Transmission Date: 20091009
  Serious: Yes (Hospitalization)
  Sender: FDA-Public Use
  Company Number: GXKR2009GB05808

PATIENT
  Age: 97 Year
  Sex: Female
  Weight: 57.7 kg

DRUGS (5)
  1. CLARITHROMYCIN [Suspect]
     Indication: PNEUMONIA
     Dosage: 250 MG, BID, ORAL
     Route: 048
     Dates: start: 20090331, end: 20090403
  2. ASPIRIN [Concomitant]
  3. CHLORAMPHENICOL [Concomitant]
  4. LATANOPROST [Concomitant]
  5. TELMISARTAN [Concomitant]

REACTIONS (1)
  - HYPONATRAEMIA [None]
